FAERS Safety Report 7347202-2 (Version None)
Quarter: 2011Q1

REPORT INFORMATION
  Report Type: 
  Country: None (occurrence: None)
  Receive Date: 20110311
  Receipt Date: 20110308
  Transmission Date: 20110831
  Serious: Yes (Other)
  Sender: FDA-Public Use
  Company Number: US-PFIZER INC-2011050596

PATIENT
  Sex: Female
  Weight: 136.5 kg

DRUGS (9)
  1. METOPROLOL [Concomitant]
     Dosage: UNK
  2. LOVASTATIN [Concomitant]
     Dosage: UNK
  3. FUROSEMIDE [Concomitant]
     Indication: FLUID RETENTION
     Dosage: UNK
  4. KLOR-CON [Concomitant]
     Dosage: UNK
  5. TOVIAZ [Suspect]
     Indication: INCONTINENCE
     Dosage: UNK
     Dates: start: 20110201
  6. LEVOTHYROXINE [Concomitant]
     Indication: THYROID DISORDER
     Dosage: UNK
  7. METFORMIN [Concomitant]
     Dosage: UNK
  8. LISINOPRIL [Concomitant]
     Dosage: UNK
  9. GLIPIZIDE [Concomitant]
     Dosage: UNK

REACTIONS (4)
  - BLOOD TRIGLYCERIDES INCREASED [None]
  - VERTIGO [None]
  - BLOOD GLUCOSE INCREASED [None]
  - INSOMNIA [None]
